FAERS Safety Report 9250772 (Version 3)
Quarter: 2013Q4

REPORT INFORMATION
  Report Type: Spontaneous
  Country: US (occurrence: US)
  Receive Date: 20130424
  Receipt Date: 20131213
  Transmission Date: 20140711
  Serious: Yes (Hospitalization, Disabling)
  Sender: FDA-Public Use
  Company Number: US-BAYER-2013-051006

PATIENT
  Age: 43 Year
  Sex: Female
  Weight: 76.64 kg

DRUGS (6)
  1. GIANVI [Suspect]
     Indication: FIBROMA
     Dosage: UNK
     Dates: start: 2008, end: 20110613
  2. YAZ [Suspect]
     Indication: FIBROMA
     Dosage: UNK
     Dates: start: 2008, end: 201106
  3. TRAMADOL [Concomitant]
     Dosage: 50 MG, UNK
  4. IBUPROFEN [Concomitant]
  5. CHLORTHALIDONE [Concomitant]
     Dosage: 25 MG, EVERY AM
  6. ULTRAM [Concomitant]
     Dosage: 50 MG, UNK

REACTIONS (9)
  - Deep vein thrombosis [Recovered/Resolved]
  - Abdominal neoplasm [None]
  - Injury [Recovered/Resolved]
  - Pain [Recovered/Resolved]
  - Deformity [Recovered/Resolved]
  - Anxiety [None]
  - Anhedonia [None]
  - Depression [None]
  - Off label use [None]
